FAERS Safety Report 4802159-0 (Version None)
Quarter: 2005Q4

REPORT INFORMATION
  Report Type: 
  Country: None (occurrence: None)
  Receive Date: 20051018
  Receipt Date: 20050920
  Transmission Date: 20060501
  Serious: Yes (Life-Threatening)
  Sender: FDA-Public Use
  Company Number: 200519139GDDC

PATIENT
  Age: 56 Year
  Sex: Female
  Weight: 82 kg

DRUGS (1)
  1. AMARYL [Suspect]
     Dosage: DOSE: 2X2
     Dates: start: 20010601, end: 20010601

REACTIONS (4)
  - ANAPHYLACTOID REACTION [None]
  - RASH [None]
  - SWOLLEN TONGUE [None]
  - URTICARIA [None]
